FAERS Safety Report 6984103-3 (Version None)
Quarter: 2010Q3

REPORT INFORMATION
  Report Type: 
  Country: None (occurrence: None)
  Receive Date: 20100915
  Receipt Date: 20090617
  Transmission Date: 20110219
  Serious: No
  Sender: FDA-Public Use
  Company Number: US-WYE-H09807409

PATIENT
  Age: 60 Year
  Sex: Male
  Weight: 54.48 kg

DRUGS (3)
  1. ADVIL PM [Suspect]
     Indication: PAIN
     Route: 048
     Dates: start: 20090607
  2. ADVIL PM [Suspect]
     Indication: SLEEP DISORDER
  3. LOVASTATIN [Concomitant]

REACTIONS (2)
  - CONDITION AGGRAVATED [None]
  - HYPERTENSION [None]
